FAERS Safety Report 20120734 (Version 1)
Quarter: 2021Q4

REPORT INFORMATION
  Report Type: Spontaneous
  Country: US (occurrence: None)
  Receive Date: 20211126
  Receipt Date: 20211126
  Transmission Date: 20220303
  Serious: Yes (Other)
  Sender: FDA-Public Use
  Company Number: None

PATIENT
  Age: 64 Year
  Sex: Female
  Weight: 61.65 kg

DRUGS (10)
  1. CASIRIVIMAB\IMDEVIMAB [Suspect]
     Active Substance: CASIRIVIMAB\IMDEVIMAB
     Indication: COVID-19
     Dosage: OTHER FREQUENCY : ONCE;?
     Route: 041
     Dates: start: 20211118, end: 20211118
  2. ALBUTEROL SULFATE [Concomitant]
     Active Substance: ALBUTEROL SULFATE
     Dates: start: 20020516
  3. AZELASTINE [Concomitant]
     Active Substance: AZELASTINE
     Dates: start: 20190927
  4. DESLORATADINE [Concomitant]
     Active Substance: DESLORATADINE
     Dates: start: 20080709
  5. FLUTICASONE [Concomitant]
     Active Substance: FLUTICASONE
     Dates: start: 20090404
  6. LEVOCETIRIZINE [Concomitant]
     Active Substance: LEVOCETIRIZINE
     Dates: start: 20090617
  7. METOPROLOL [Concomitant]
     Active Substance: METOPROLOL
     Dates: start: 20160524
  8. PRAVACHOL [Concomitant]
     Active Substance: PRAVASTATIN SODIUM
     Dates: start: 20060424
  9. SPIRONOLACTONE [Concomitant]
     Active Substance: SPIRONOLACTONE
     Dates: start: 20160311
  10. VALSARTAN [Concomitant]
     Active Substance: VALSARTAN
     Dates: start: 20160311

REACTIONS (5)
  - Malaise [None]
  - Asthenia [None]
  - Oxygen saturation decreased [None]
  - Feeling abnormal [None]
  - Pneumonia [None]

NARRATIVE: CASE EVENT DATE: 20211120
